FAERS Safety Report 4375667-7 (Version None)
Quarter: 2004Q2

REPORT INFORMATION
  Report Type: 
  Country: None (occurrence: None)
  Receive Date: 20040607
  Receipt Date: 20040521
  Transmission Date: 20050107
  Serious: Yes (Death)
  Sender: FDA-Public Use
  Company Number: US013206

PATIENT
  Sex: Male
  Weight: 181.4388 kg

DRUGS (4)
  1. ACTIQ [Suspect]
     Indication: BACK PAIN
  2. OXYCONTIN [Suspect]
  3. LORTAB [Suspect]
  4. VALIUM [Suspect]

REACTIONS (2)
  - ACCIDENT [None]
  - DRUG TOXICITY [None]
